FAERS Safety Report 13085677 (Version 1)
Quarter: 2017Q1

REPORT INFORMATION
  Report Type: Spontaneous
  Country: US (occurrence: US)
  Receive Date: 20170104
  Receipt Date: 20170104
  Transmission Date: 20170428
  Serious: Yes (Hospitalization, Disabling)
  Sender: FDA-Public Use
  Company Number: None

PATIENT
  Age: 50 Year
  Sex: Female
  Weight: 48.6 kg

DRUGS (1)
  1. CIPROFLAXIN [Suspect]
     Active Substance: CIPROFLOXACIN
     Indication: URINARY TRACT INFECTION
     Route: 048
     Dates: start: 20140201, end: 20140205

REACTIONS (12)
  - Orthostatic hypotension [None]
  - Headache [None]
  - Movement disorder [None]
  - Intervertebral disc disorder [None]
  - Hypophagia [None]
  - General physical health deterioration [None]
  - Asthenia [None]
  - Musculoskeletal stiffness [None]
  - Cervical spinal stenosis [None]
  - Gait disturbance [None]
  - Dizziness [None]
  - Constipation [None]

NARRATIVE: CASE EVENT DATE: 20140205
